FAERS Safety Report 24612767 (Version 1)
Quarter: 2024Q4

REPORT INFORMATION
  Report Type: Spontaneous
  Country: US (occurrence: None)
  Receive Date: 20241112
  Receipt Date: 20241112
  Transmission Date: 20250115
  Serious: No
  Sender: Public
  Company Number: None

PATIENT
  Age: 57 Year
  Sex: Female
  Weight: 67 kg

DRUGS (1)
  1. DIATRIZOATE MEGLUMINE AND DIATRIZOATE SODIUM [Suspect]
     Active Substance: DIATRIZOATE MEGLUMINE\DIATRIZOATE SODIUM
     Indication: Surgery
     Dosage: 10.00 MG  ONCE ORAL?
     Route: 048
     Dates: start: 20240801, end: 20240801

REACTIONS (5)
  - Anaphylactic reaction [None]
  - Chills [None]
  - Tachypnoea [None]
  - Hypoaesthesia [None]
  - Paraesthesia [None]

NARRATIVE: CASE EVENT DATE: 20240801
